FAERS Safety Report 17409477 (Version 2)
Quarter: 2020Q2

REPORT INFORMATION
  Report Type: Spontaneous
  Country: IN (occurrence: IN)
  Receive Date: 20200212
  Receipt Date: 20200401
  Transmission Date: 20200713
  Serious: Yes (Other)
  Sender: FDA-Public Use
  Company Number: IN-PFIZER INC-2020058783

PATIENT
  Age: 67 Year
  Sex: Male

DRUGS (1)
  1. INLYTA [Suspect]
     Active Substance: AXITINIB
     Indication: METASTATIC RENAL CELL CARCINOMA
     Dosage: 5 MG, 2X/DAY (1HR BEFORE AND AFTER MEAL)
     Route: 048
     Dates: start: 20190905

REACTIONS (9)
  - Pollakiuria [Unknown]
  - Haemothorax [Unknown]
  - Condition aggravated [Unknown]
  - Fluid retention [Unknown]
  - Pain [Not Recovered/Not Resolved]
  - Cough [Unknown]
  - Chest pain [Unknown]
  - Back pain [Unknown]
  - Neoplasm progression [Unknown]
